FAERS Safety Report 19175369 (Version 1)
Quarter: 2021Q2

REPORT INFORMATION
  Report Type: Report from Study
  Country: None (occurrence: US)
  Receive Date: 20210424
  Receipt Date: 20210424
  Transmission Date: 20210717
  Serious: Yes (Hospitalization, Other)
  Sender: FDA-Public Use
  Company Number: US-ABBVIE-21K-163-3843076-00

PATIENT
  Age: 74 Year
  Sex: Male

DRUGS (1)
  1. VENCLEXTA [Suspect]
     Active Substance: VENETOCLAX
     Indication: ACUTE MYELOID LEUKAEMIA
     Route: 048
     Dates: start: 202103

REACTIONS (11)
  - Tremor [Unknown]
  - Atrial fibrillation [Recovered/Resolved]
  - Peripheral swelling [Unknown]
  - Pyrexia [Recovered/Resolved]
  - Asthenia [Unknown]
  - Platelet transfusion [Unknown]
  - Cough [Recovering/Resolving]
  - COVID-19 pneumonia [Recovering/Resolving]
  - Erythema [Unknown]
  - Transfusion [Unknown]
  - Stress [Unknown]

NARRATIVE: CASE EVENT DATE: 2021
